FAERS Safety Report 5713802-6 (Version None)
Quarter: 2008Q2

REPORT INFORMATION
  Report Type: 
  Country: None (occurrence: None)
  Receive Date: 20080421
  Receipt Date: 20080407
  Transmission Date: 20081010
  Serious: Yes (Hospitalization)
  Sender: FDA-Public Use
  Company Number: 78250

PATIENT
  Age: 58 Year
  Sex: Female

DRUGS (6)
  1. ACETAMINOPHEN [Suspect]
     Dosage: ORAL
     Route: 048
  2. FLUOXETINE [Concomitant]
  3. DIAZEPAM [Concomitant]
  4. LANSOPRAZOLE [Concomitant]
  5. CONJUGATED ESTROGEN [Concomitant]
  6. SUMATRIPTAN SUCCINATE [Concomitant]

REACTIONS (21)
  - ACIDOSIS [None]
  - ALANINE AMINOTRANSFERASE INCREASED [None]
  - ALCOHOL POISONING [None]
  - ANALGESIC DRUG LEVEL INCREASED [None]
  - ASPARTATE AMINOTRANSFERASE INCREASED [None]
  - BLOOD CREATININE INCREASED [None]
  - BLOOD GLUCOSE INCREASED [None]
  - BLOOD PRESSURE INCREASED [None]
  - CONFUSIONAL STATE [None]
  - ELECTROCARDIOGRAM QRS COMPLEX SHORTENED [None]
  - ELECTROCARDIOGRAM QT PROLONGED [None]
  - HYPOACUSIS [None]
  - HYPOKALAEMIA [None]
  - LABORATORY TEST ABNORMAL [None]
  - LIVEDO RETICULARIS [None]
  - METABOLIC ACIDOSIS [None]
  - ORAL INTAKE REDUCED [None]
  - PERIPHERAL COLDNESS [None]
  - RESPIRATORY RATE INCREASED [None]
  - TACHYPNOEA [None]
  - VENTRICULAR ARRHYTHMIA [None]
